FAERS Safety Report 8139936-7 (Version None)
Quarter: 2012Q1

REPORT INFORMATION
  Report Type: 
  Country: None (occurrence: None)
  Receive Date: 20120215
  Receipt Date: 20120207
  Transmission Date: 20120608
  Serious: No
  Sender: FDA-Public Use
  Company Number: US-B.I. PHARMACEUTICALS,INC./RIDGEFIELD-2012-BP-02416BP

PATIENT
  Age: 42 Year
  Sex: Female

DRUGS (2)
  1. ZANTAC 150 [Suspect]
  2. ZANTAC 150 [Suspect]
     Indication: DYSPEPSIA
     Route: 048
     Dates: start: 20111101, end: 20111203

REACTIONS (2)
  - INTENTIONAL DRUG MISUSE [None]
  - URINE AMPHETAMINE POSITIVE [None]
